FAERS Safety Report 4708074-5 (Version None)
Quarter: 2005Q3

REPORT INFORMATION
  Report Type: 
  Country: None (occurrence: None)
  Receive Date: 20050707
  Receipt Date: 20050630
  Transmission Date: 20060218
  Serious: Yes (Death)
  Sender: FDA-Public Use
  Company Number: GB-BOEHRINGER INGELHEIM PHARMACEUTICALS, INC.-2005-UK-01193UK

PATIENT
  Age: 78 Year
  Sex: Female
  Weight: 75 kg

DRUGS (11)
  1. MICARDIS [Suspect]
     Indication: HYPERTENSION
     Route: 048
     Dates: start: 20050307, end: 20050508
  2. TRITACE [Concomitant]
     Indication: BLOOD PRESSURE
     Route: 048
     Dates: start: 20050222
  3. ATENOLOL [Concomitant]
     Indication: MYOCARDIAL INFARCTION
     Route: 048
     Dates: start: 20050120
  4. ATENOLOL [Concomitant]
     Indication: BLOOD PRESSURE
  5. CLOPIDOGREL BISULFATE [Concomitant]
     Indication: MYOCARDIAL INFARCTION
     Route: 048
     Dates: start: 20050301
  6. CLOPIDOGREL BISULFATE [Concomitant]
     Indication: MYOCARDIAL ISCHAEMIA
  7. LEVOTHYROXINE [Concomitant]
     Route: 048
     Dates: start: 19800101
  8. ATORVASTATIN CALCIUM [Concomitant]
     Indication: MYOCARDIAL ISCHAEMIA
     Route: 048
     Dates: start: 20050408, end: 20050408
  9. ASPIRIN [Concomitant]
     Indication: MYOCARDIAL ISCHAEMIA
     Route: 048
  10. LERCANIDIPINE [Concomitant]
     Indication: BLOOD PRESSURE
     Route: 048
  11. LERCANIDIPINE [Concomitant]
     Indication: MYOCARDIAL INFARCTION

REACTIONS (1)
  - MYOCARDIAL INFARCTION [None]
